FAERS Safety Report 8780412 (Version 1)
Quarter: 2012Q4

REPORT INFORMATION
  Report Type: Spontaneous
  Country: US (occurrence: None)
  Receive Date: 20120905
  Receipt Date: 20120905
  Transmission Date: 20130627
  Serious: Yes (Disabling)
  Sender: FDA-Public Use
  Company Number: None

PATIENT
  Sex: Female
  Weight: 70.31 kg

DRUGS (2)
  1. NAPROXEN [Suspect]
     Dosage: a few weeks
     Route: 048
  2. SIMVASTATIN [Suspect]
     Dosage: a few months
     Route: 048

REACTIONS (6)
  - Confusional state [None]
  - Disorientation [None]
  - Anxiety [None]
  - Myalgia [None]
  - Myalgia [None]
  - Impaired driving ability [None]
